FAERS Safety Report 9995739 (Version 1)
Quarter: 2014Q1

REPORT INFORMATION
  Report Type: Spontaneous
  Country: US (occurrence: None)
  Receive Date: 20140310
  Receipt Date: 20140310
  Transmission Date: 20141002
  Serious: Yes (Other)
  Sender: FDA-Public Use
  Company Number: None

PATIENT
  Age: 68 Year
  Sex: Male
  Weight: 75.75 kg

DRUGS (2)
  1. LANTUS SOLOSTAR (INSULIN GLARGINE) [Suspect]
     Indication: DIABETES MELLITUS
     Dosage: LOT#?4F415A?EXP DATE?05/01/2016
  2. VITAMINS [Concomitant]

REACTIONS (2)
  - Product quality issue [None]
  - Needle issue [None]
